FAERS Safety Report 8846445 (Version 1)
Quarter: 2012Q4

REPORT INFORMATION
  Report Type: 
  Country: US (occurrence: US)
  Receive Date: 20121017
  Receipt Date: 20121017
  Transmission Date: 20130627
  Serious: No
  Sender: FDA-Public Use
  Company Number: US-BAYER-2012-104140

PATIENT

DRUGS (2)
  1. ALEVE CAPLET/TABLET,MIDOL EXTENDED RELIEF CAPLET [Suspect]
     Indication: AURICULAR SWELLING
     Dosage: 1 DF, UNK
     Route: 048
  2. ANTIBIOTICS [Concomitant]

REACTIONS (4)
  - Pyrexia [None]
  - Lip discolouration [None]
  - Pallor [None]
  - Dizziness [None]
